FAERS Safety Report 13858267 (Version 1)
Quarter: 2017Q3

REPORT INFORMATION
  Report Type: Spontaneous
  Country: US (occurrence: US)
  Receive Date: 20170810
  Receipt Date: 20170810
  Transmission Date: 20171127
  Serious: Yes (Hospitalization)
  Sender: FDA-Public Use
  Company Number: None

PATIENT
  Age: 63 Year
  Sex: Female

DRUGS (9)
  1. WELLBUTRIN [Concomitant]
     Active Substance: BUPROPION HYDROCHLORIDE
  2. FASLODEX [Concomitant]
     Active Substance: FULVESTRANT
  3. DIOVAN [Concomitant]
     Active Substance: VALSARTAN
  4. AMBIEN [Concomitant]
     Active Substance: ZOLPIDEM TARTRATE
  5. IBRANCE [Suspect]
     Active Substance: PALBOCICLIB
     Indication: NEOPLASM MALIGNANT
     Route: 048
     Dates: start: 20160519
  6. REMERON [Concomitant]
     Active Substance: MIRTAZAPINE
  7. FASLODEX [Concomitant]
     Active Substance: FULVESTRANT
  8. MULTIPLE VITAMIN [Concomitant]
     Active Substance: VITAMINS
  9. LIPITOR [Concomitant]
     Active Substance: ATORVASTATIN CALCIUM

REACTIONS (1)
  - Hip fracture [None]

NARRATIVE: CASE EVENT DATE: 201708
